FAERS Safety Report 4353398-7 (Version None)
Quarter: 2004Q2

REPORT INFORMATION
  Report Type: 
  Country: None (occurrence: None)
  Receive Date: 20040504
  Receipt Date: 20040419
  Transmission Date: 20050107
  Serious: Yes (Hospitalization)
  Sender: FDA-Public Use
  Company Number: 04-0027

PATIENT
  Age: 6 Year
  Weight: 19.414 kg

DRUGS (2)
  1. VIRAVAN (PHENYLEPHRINE TANNATE 25 MG; PYRITAMINE TANNATE 30 MG) [Suspect]
     Indication: UPPER RESPIRATORY TRACT INFECTION
     Dosage: 1/2 TABLET BID, 2/18/2004 PM, 2/19/2004 AM
  2. TYLENOL (CAPLET) [Concomitant]

REACTIONS (2)
  - HALLUCINATION, VISUAL [None]
  - PERSECUTORY DELUSION [None]
